FAERS Safety Report 12518099 (Version 1)
Quarter: 2016Q2

REPORT INFORMATION
  Report Type: Report from Study
  Country: CO (occurrence: CO)
  Receive Date: 20160630
  Receipt Date: 20160630
  Transmission Date: 20160815
  Serious: Yes (Hospitalization, Other)
  Sender: FDA-Public Use
  Company Number: CO-ASTRAZENECA-2016SE54822

PATIENT
  Age: 16913 Day
  Sex: Female

DRUGS (3)
  1. TAMOXIFEN [Concomitant]
     Active Substance: TAMOXIFEN
  2. ZOLADEX [Suspect]
     Active Substance: GOSERELIN ACETATE
     Indication: BREAST CANCER
     Route: 058
     Dates: start: 20150501
  3. ZOLADEX [Suspect]
     Active Substance: GOSERELIN ACETATE
     Indication: BREAST CANCER
     Route: 058
     Dates: start: 20150901, end: 20160428

REACTIONS (7)
  - Nausea [Recovered/Resolved]
  - Product use issue [Unknown]
  - Migraine [Recovered/Resolved]
  - Pain [Recovered/Resolved]
  - Vomiting [Recovered/Resolved]
  - Asthenia [Recovered/Resolved]
  - Headache [Recovered/Resolved]

NARRATIVE: CASE EVENT DATE: 20160429
